FAERS Safety Report 5880544-6 (Version None)
Quarter: 2008Q3

REPORT INFORMATION
  Report Type: 
  Country: None (occurrence: None)
  Receive Date: 20080912
  Receipt Date: 20080602
  Transmission Date: 20090109
  Serious: No
  Sender: FDA-Public Use
  Company Number: US-ABBOTT-08P-163-0454464-00

PATIENT
  Sex: Male
  Weight: 83.99 kg

DRUGS (1)
  1. HUMIRA [Suspect]
     Indication: POLYCHONDRITIS
     Route: 058
     Dates: start: 20071101

REACTIONS (2)
  - RASH [None]
  - SKIN EXFOLIATION [None]
